FAERS Safety Report 16185395 (Version 1)
Quarter: 2019Q2

REPORT INFORMATION
  Report Type: Spontaneous
  Country: US (occurrence: US)
  Receive Date: 20190411
  Receipt Date: 20190411
  Transmission Date: 20190711
  Serious: No
  Sender: FDA-Public Use
  Company Number: PHHY2019US081762

PATIENT
  Age: 70 Year
  Sex: Female

DRUGS (3)
  1. BETADINE [Suspect]
     Active Substance: POVIDONE-IODINE
     Indication: INFECTION PROPHYLAXIS
     Dosage: UNK
     Route: 061
     Dates: end: 20180830
  2. OZURDEX [Suspect]
     Active Substance: DEXAMETHASONE
     Indication: MACULAR OEDEMA
  3. OZURDEX [Suspect]
     Active Substance: DEXAMETHASONE
     Indication: UVEITIS
     Dosage: 0.7 MG, ONCE/SINGLE
     Route: 031

REACTIONS (2)
  - Corneal abrasion [Unknown]
  - Off label use [Unknown]

NARRATIVE: CASE EVENT DATE: 20180830
